FAERS Safety Report 19000239 (Version 1)
Quarter: 2021Q1

REPORT INFORMATION
  Report Type: Spontaneous
  Country: FR (occurrence: FR)
  Receive Date: 20210312
  Receipt Date: 20210312
  Transmission Date: 20210420
  Serious: Yes (Hospitalization)
  Sender: FDA-Public Use
  Company Number: FR-SCIEGEN-2021SCILIT00223

PATIENT
  Age: 66 Year
  Sex: Male

DRUGS (2)
  1. HYDROCHLOROTHIAZIDE CAPSULES USP, 12.5 MG [Suspect]
     Active Substance: HYDROCHLOROTHIAZIDE
     Indication: DIURETIC THERAPY
     Dosage: MG/DAY
     Route: 065
  2. BUMETANIDE. [Suspect]
     Active Substance: BUMETANIDE
     Indication: DIURETIC THERAPY
     Dosage: MG/DAY
     Route: 042

REACTIONS (1)
  - Drug resistance [Unknown]
